FAERS Safety Report 5887436-7 (Version None)
Quarter: 2008Q3

REPORT INFORMATION
  Report Type: 
  Country: None (occurrence: None)
  Receive Date: 20080918
  Receipt Date: 20080728
  Transmission Date: 20090109
  Serious: Yes (Disabling)
  Sender: FDA-Public Use
  Company Number: US-PURDUE-USA_2008_0034277

PATIENT
  Age: 45 Year
  Sex: Female

DRUGS (1)
  1. OXYCONTIN [Suspect]
     Indication: HEADACHE
     Dosage: 40 MG, QID
     Dates: start: 19990520

REACTIONS (6)
  - AMNESIA [None]
  - IMPAIRED WORK ABILITY [None]
  - MENTAL IMPAIRMENT [None]
  - MUSCLE CONTRACTIONS INVOLUNTARY [None]
  - PAIN [None]
  - RESORPTION BONE INCREASED [None]
